FAERS Safety Report 5699954-5 (Version None)
Quarter: 2008Q2

REPORT INFORMATION
  Report Type: 
  Country: None (occurrence: None)
  Receive Date: 20080410
  Receipt Date: 20080408
  Transmission Date: 20081010
  Serious: Yes (Other)
  Sender: FDA-Public Use
  Company Number: A0573635A

PATIENT
  Age: 51 Year
  Sex: Female

DRUGS (5)
  1. AMERICAN FARE NTS, 21MG STEP 1 [Suspect]
     Dates: start: 20050907
  2. HYDROCHLOROTHIAZIDE [Concomitant]
  3. DEPAKOTE [Concomitant]
     Indication: DEPRESSION
  4. LITHOBID [Concomitant]
  5. CYTOMEL [Concomitant]

REACTIONS (12)
  - BLOOD PRESSURE INCREASED [None]
  - DYSPNOEA [None]
  - FEELING DRUNK [None]
  - INSOMNIA [None]
  - MANIA [None]
  - MENTAL IMPAIRMENT [None]
  - MOOD ALTERED [None]
  - NERVOUSNESS [None]
  - PALPITATIONS [None]
  - PSYCHOMOTOR HYPERACTIVITY [None]
  - RESTLESSNESS [None]
  - TREMOR [None]
